FAERS Safety Report 5186394-0 (Version None)
Quarter: 2006Q4

REPORT INFORMATION
  Report Type: 
  Country: None (occurrence: None)
  Receive Date: 20061220
  Receipt Date: 20061024
  Transmission Date: 20070319
  Serious: Yes (Hospitalization, Other)
  Sender: FDA-Public Use
  Company Number: US-SHR-US-2006-033117

PATIENT
  Age: 26 Year
  Sex: Female
  Weight: 74 kg

DRUGS (5)
  1. MIRENA [Suspect]
     Dosage: 20 A?G/DAY, CONT
     Route: 015
     Dates: start: 20060606, end: 20060619
  2. ZITHROMAX [Concomitant]
     Indication: CHLAMYDIAL INFECTION
     Dosage: 1 G, 1 DOSE
     Route: 048
     Dates: start: 20060606, end: 20060606
  3. ZITHROMAX [Concomitant]
     Dosage: 1 G, 1 DOSE
     Route: 048
     Dates: start: 20060616, end: 20060616
  4. PRENATAL VITAMINS [Concomitant]
     Indication: VITAMIN SUPPLEMENTATION
     Dosage: UNK, 1X/DAY
     Route: 048
  5. IRON [Concomitant]
     Indication: VITAMIN SUPPLEMENTATION
     Dosage: UNK, 1X/DAY
     Route: 048

REACTIONS (4)
  - CHLAMYDIAL INFECTION [None]
  - INFECTION [None]
  - IUD MIGRATION [None]
  - UTERINE PERFORATION [None]
